FAERS Safety Report 20988174 (Version 1)
Quarter: 2022Q2

REPORT INFORMATION
  Report Type: Spontaneous
  Country: US (occurrence: US)
  Receive Date: 20220621
  Receipt Date: 20220621
  Transmission Date: 20220721
  Serious: No
  Sender: FDA-Public Use
  Company Number: US-PFIZER INC-202200857649

PATIENT
  Age: 63 Year
  Sex: Female
  Weight: 70.76 kg

DRUGS (2)
  1. PAXLOVID [Suspect]
     Active Substance: NIRMATRELVIR\RITONAVIR
     Indication: COVID-19 treatment
     Dosage: 300 MG,  TWO 300 MG AND ONE 100 MG. WELL IT IS 150, SO IT IS A TOTAL OF 300 MG AND 100 MG, ITS 250
  2. ACYCLOVIR [Concomitant]
     Active Substance: ACYCLOVIR
     Indication: Prophylaxis
     Dosage: UNK

REACTIONS (1)
  - Diarrhoea [Unknown]
